FAERS Safety Report 8033947-8 (Version None)
Quarter: 2012Q1

REPORT INFORMATION
  Report Type: 
  Country: None (occurrence: None)
  Receive Date: 20120110
  Receipt Date: 20120104
  Transmission Date: 20120608
  Serious: Yes (Death, Disabling)
  Sender: FDA-Public Use
  Company Number: US-CELGENEUS-163-21880-11091943

PATIENT
  Sex: Male

DRUGS (12)
  1. REVLIMID [Suspect]
     Indication: MULTIPLE MYELOMA
     Dosage: 25 MILLIGRAM
     Route: 048
     Dates: start: 20110701
  2. INH [Concomitant]
     Route: 065
  3. ALDACTONE [Concomitant]
     Indication: EFFUSION
  4. REVLIMID [Suspect]
     Dosage: 15 MILLIGRAM
     Route: 048
     Dates: start: 20110801
  5. ADVAIR DISKUS 100/50 [Concomitant]
     Route: 065
  6. ALDACTONE [Concomitant]
     Route: 048
  7. GLYBURIDE [Concomitant]
     Indication: DIABETES MELLITUS
     Route: 065
  8. NORCO [Concomitant]
     Indication: PAIN
     Route: 065
  9. HYDROCODONE BITARTRATE AND ACETAMINOPHEN [Concomitant]
     Dosage: 7.5-500MG
     Route: 065
  10. LASIX [Concomitant]
     Dosage: 25 MILLIGRAM
     Route: 065
  11. PYRIDOXINE HCL [Concomitant]
  12. POTASSIUM CHLORIDE [Concomitant]
     Dosage: 40 MILLIEQUIVALENTS
     Route: 065

REACTIONS (1)
  - PLEURAL EFFUSION [None]
